FAERS Safety Report 8024220-2 (Version None)
Quarter: 2012Q1

REPORT INFORMATION
  Report Type: 
  Country: None (occurrence: None)
  Receive Date: 20120105
  Receipt Date: 20120102
  Transmission Date: 20120608
  Serious: Yes (Death, Other)
  Sender: FDA-Public Use
  Company Number: PHHY2012AR000616

PATIENT
  Sex: Female

DRUGS (1)
  1. DIOVAN [Suspect]
     Dosage: 320 MG, UNK

REACTIONS (4)
  - ABASIA [None]
  - PATIENT-DEVICE INCOMPATIBILITY [None]
  - WEIGHT INCREASED [None]
  - PULMONARY EMBOLISM [None]
